FAERS Safety Report 18893863 (Version 2)
Quarter: 2021Q1

REPORT INFORMATION
  Report Type: Spontaneous
  Country: FR (occurrence: FR)
  Receive Date: 20210215
  Receipt Date: 20210318
  Transmission Date: 20210420
  Serious: Yes (Hospitalization, Other)
  Sender: FDA-Public Use
  Company Number: FR-GLAXOSMITHKLINE-FRCH2021GSK005795

PATIENT
  Age: 13 Year
  Sex: Female

DRUGS (1)
  1. IBUPROFENE [Suspect]
     Active Substance: IBUPROFEN
     Indication: PRODUCT USED FOR UNKNOWN INDICATION
     Dosage: 39 G
     Route: 048
     Dates: start: 20200902, end: 20200902

REACTIONS (3)
  - Abdominal pain [Recovered/Resolved]
  - Vomiting [Recovered/Resolved]
  - Poisoning deliberate [Unknown]

NARRATIVE: CASE EVENT DATE: 20200902
